FAERS Safety Report 20439038 (Version 1)
Quarter: 2022Q1

REPORT INFORMATION
  Report Type: Spontaneous
  Country: US (occurrence: US)
  Receive Date: 20220207
  Receipt Date: 20220207
  Transmission Date: 20220423
  Serious: Yes (Other)
  Sender: FDA-Public Use
  Company Number: US-GLAXOSMITHKLINE-US2022GSK021304

PATIENT
  Sex: Male

DRUGS (10)
  1. RANITIDINE [Suspect]
     Active Substance: RANITIDINE
     Indication: Dyspepsia
     Dosage: 150 MG BOTH
     Route: 065
     Dates: start: 201201, end: 201910
  2. RANITIDINE [Suspect]
     Active Substance: RANITIDINE
     Dosage: 300 MG
     Route: 065
     Dates: start: 201201, end: 201910
  3. ZANTAC [Suspect]
     Active Substance: RANITIDINE HYDROCHLORIDE
     Indication: Dyspepsia
     Dosage: 150 MG
     Route: 065
     Dates: start: 201001, end: 201201
  4. ZANTAC [Suspect]
     Active Substance: RANITIDINE HYDROCHLORIDE
     Dosage: UNK
  5. RANITIDINE [Suspect]
     Active Substance: RANITIDINE
     Indication: Dyspepsia
     Dosage: 150 MG BOTH
     Route: 065
     Dates: start: 201201, end: 201910
  6. RANITIDINE [Suspect]
     Active Substance: RANITIDINE
     Dosage: 300 MG
     Route: 065
     Dates: start: 201201, end: 201910
  7. RANITIDINE [Suspect]
     Active Substance: RANITIDINE
     Indication: Dyspepsia
     Dosage: 150 MG BOTH
     Route: 065
     Dates: start: 201201, end: 201910
  8. RANITIDINE [Suspect]
     Active Substance: RANITIDINE
     Dosage: 300 MG
     Route: 065
     Dates: start: 201201, end: 201910
  9. RANITIDINE [Suspect]
     Active Substance: RANITIDINE
     Indication: Dyspepsia
     Dosage: 150 MG BOTH
     Route: 065
     Dates: start: 201201, end: 201910
  10. RANITIDINE [Suspect]
     Active Substance: RANITIDINE
     Dosage: 300 MG
     Route: 065
     Dates: start: 201201, end: 201910

REACTIONS (1)
  - Renal cancer [Unknown]
